FAERS Safety Report 18622086 (Version 11)
Quarter: 2025Q1

REPORT INFORMATION
  Report Type: Report from Study
  Country: US (occurrence: US)
  Receive Date: 20201216
  Receipt Date: 20250108
  Transmission Date: 20250409
  Serious: Yes (Hospitalization, Other)
  Sender: TAKEDA
  Company Number: US-TAKEDA-US202030515

PATIENT
  Sex: Male
  Weight: 81 kg

DRUGS (47)
  1. HUMAN IMMUNOGLOBULIN G [Suspect]
     Active Substance: HUMAN IMMUNOGLOBULIN G
     Indication: Immunodeficiency common variable
     Dosage: 7.5 GRAM, 1/WEEK
     Dates: start: 20160130
  2. HUMAN IMMUNOGLOBULIN G [Suspect]
     Active Substance: HUMAN IMMUNOGLOBULIN G
     Indication: Primary immunodeficiency syndrome
     Dosage: 7.5 GRAM, 1/WEEK
     Dates: start: 20170308
  3. HUMAN IMMUNOGLOBULIN G [Suspect]
     Active Substance: HUMAN IMMUNOGLOBULIN G
     Dosage: 7.5 GRAM, 1/WEEK
     Dates: start: 20180107
  4. DIPHENHYDRAMINE [Concomitant]
     Active Substance: DIPHENHYDRAMINE
  5. LEVETIRACETAM [Concomitant]
     Active Substance: LEVETIRACETAM
  6. MINOXIDIL [Concomitant]
     Active Substance: MINOXIDIL
  7. ONDANSETRON HYDROCHLORIDE [Concomitant]
     Active Substance: ONDANSETRON HYDROCHLORIDE
  8. OCUVITE [Concomitant]
     Active Substance: VITAMINS
  9. HYOSCYAMINE SULFATE [Concomitant]
     Active Substance: HYOSCYAMINE SULFATE
  10. EPINEPHRINE [Concomitant]
     Active Substance: EPINEPHRINE
  11. DIETARY SUPPLEMENT\RESVERATROL [Concomitant]
     Active Substance: DIETARY SUPPLEMENT\RESVERATROL
  12. FLUTICASONE PROPIONATE [Concomitant]
     Active Substance: FLUTICASONE PROPIONATE
  13. LIDOCAINE\PRILOCAINE [Concomitant]
     Active Substance: LIDOCAINE\PRILOCAINE
  14. TRIAMCINOLONE ACETONIDE [Concomitant]
     Active Substance: TRIAMCINOLONE ACETONIDE
  15. TYLENOL [Concomitant]
     Active Substance: ACETAMINOPHEN
  16. TART CHERRY [Concomitant]
  17. FISH OIL [Concomitant]
     Active Substance: FISH OIL
  18. FAMOTIDINE [Concomitant]
     Active Substance: FAMOTIDINE
  19. KEPPRA [Concomitant]
     Active Substance: LEVETIRACETAM
  20. CRESTOR [Concomitant]
     Active Substance: ROSUVASTATIN CALCIUM
  21. VITAMIN D3 [Concomitant]
     Active Substance: CHOLECALCIFEROL
  22. FLUAD QUADRIVALENT NOS [Concomitant]
     Active Substance: INFLUENZA A VIRUS A/HONG KONG/2671/2019 IVR-208 (H3N2) ANTIGEN (FORMALDEHYDE INACTIVATED)\INFLUENZA
  23. CVS COENZYME Q 10 [Concomitant]
  24. MODERNA COVID-19 VACCINE [Concomitant]
     Active Substance: ELASOMERAN
  25. PANTOPRAZOLE SODIUM [Concomitant]
     Active Substance: PANTOPRAZOLE SODIUM
  26. VALACYCLOVIR [Concomitant]
     Active Substance: VALACYCLOVIR HYDROCHLORIDE
  27. ASPIRIN [Concomitant]
     Active Substance: ASPIRIN
  28. XOPENEX [Concomitant]
     Active Substance: LEVALBUTEROL HYDROCHLORIDE
  29. IBUPROFEN [Concomitant]
     Active Substance: IBUPROFEN
  30. SAW PALMETTO BERRY [Concomitant]
  31. PRILOSEC [Concomitant]
     Active Substance: OMEPRAZOLE MAGNESIUM
  32. FLONASE [Concomitant]
     Active Substance: FLUTICASONE PROPIONATE
  33. LUTEIN-ZEAXANTHIN [Concomitant]
  34. FOLIC ACID [Concomitant]
     Active Substance: FOLIC ACID
  35. VITAMIN B [Concomitant]
     Active Substance: VITAMIN B
  36. TYLENOL EXTRA STRENGTH [Concomitant]
     Active Substance: ACETAMINOPHEN
  37. HIZENTRA [Concomitant]
     Active Substance: HUMAN IMMUNOGLOBULIN G
  38. VALTREX [Concomitant]
     Active Substance: VALACYCLOVIR HYDROCHLORIDE
  39. EZETIMIBE [Concomitant]
     Active Substance: EZETIMIBE
  40. XDEMVY [Concomitant]
     Active Substance: LOTILANER
  41. BENEFIBER [Concomitant]
     Active Substance: STARCH, WHEAT
  42. NORTRIPTYLINE [Concomitant]
     Active Substance: NORTRIPTYLINE
  43. LEVOTHYROXINE [Concomitant]
     Active Substance: LEVOTHYROXINE
  44. VASCEPA [Concomitant]
     Active Substance: ICOSAPENT ETHYL
  45. SILODOSIN [Concomitant]
     Active Substance: SILODOSIN
  46. Ocuvite blue light [Concomitant]
  47. DIPHENHYDRAMINE HYDROCHLORIDE [Concomitant]
     Active Substance: DIPHENHYDRAMINE HYDROCHLORIDE

REACTIONS (26)
  - COVID-19 [Unknown]
  - Epilepsy [Unknown]
  - Gastrointestinal disorder [Unknown]
  - Gallbladder disorder [Unknown]
  - Blepharitis [Unknown]
  - Eyelid infection [Unknown]
  - Arthropod bite [Unknown]
  - Musculoskeletal discomfort [Unknown]
  - Prostatitis [Unknown]
  - Hordeolum [Unknown]
  - Upper-airway cough syndrome [Unknown]
  - Meibomian gland dysfunction [Unknown]
  - Chalazion [Unknown]
  - Eye infection [Unknown]
  - Tooth disorder [Unknown]
  - Chronic fatigue syndrome [Unknown]
  - Gastroenteritis viral [Unknown]
  - Herpes simplex [Unknown]
  - Pain [Unknown]
  - Conjunctivitis [Unknown]
  - Insomnia [Unknown]
  - Anaemia [Unknown]
  - Back pain [Unknown]
  - Pyrexia [Unknown]
  - Pruritus [Unknown]
  - Urticaria [Unknown]

NARRATIVE: CASE EVENT DATE: 20200101
